FAERS Safety Report 11336984 (Version 1)
Quarter: 2015Q3

REPORT INFORMATION
  Report Type: Spontaneous
  Country: TR (occurrence: TR)
  Receive Date: 20150804
  Receipt Date: 20150804
  Transmission Date: 20151125
  Serious: Yes (Death)
  Sender: FDA-Public Use
  Company Number: TR-BAYER-2015-138122

PATIENT
  Age: 64 Year
  Sex: Male

DRUGS (4)
  1. NEXAVAR [Suspect]
     Active Substance: SORAFENIB
     Indication: HEPATIC CANCER
     Dosage: 800 MG, QD
     Route: 048
  2. INSULIN [Concomitant]
     Active Substance: INSULIN NOS
  3. ADALAT CRONO [Concomitant]
     Active Substance: NIFEDIPINE
     Indication: HYPERTENSION
  4. ATACAND [CANDESARTAN CILEXETIL,HYDROCHLOROTHIAZIDE] [Concomitant]
     Indication: HYPERTENSION

REACTIONS (3)
  - Internal haemorrhage [Fatal]
  - Drug ineffective [None]
  - Varicose vein [Fatal]
